FAERS Safety Report 4542677-6 (Version None)
Quarter: 2004Q4

REPORT INFORMATION
  Report Type: 
  Country: None (occurrence: None)
  Receive Date: 20041230
  Receipt Date: 20041014
  Transmission Date: 20050328
  Serious: Yes (Hospitalization, Disabling)
  Sender: FDA-Public Use
  Company Number: DE-MERCK-0410DEU00468

PATIENT
  Age: 55 Year
  Sex: Female
  Weight: 70 kg

DRUGS (10)
  1. VIOXX [Suspect]
     Route: 048
     Dates: start: 20020809, end: 20020813
  2. VIOXX [Suspect]
     Route: 048
     Dates: start: 20021129, end: 20030601
  3. PREDNISONE [Concomitant]
     Route: 048
     Dates: start: 20030508
  4. BISOPROLOL FUMARATE [Concomitant]
     Route: 048
     Dates: start: 20030203
  5. PANTOPRAZOLE SODIUM [Concomitant]
     Route: 048
     Dates: start: 20021206
  6. HEPARIN [Concomitant]
     Route: 051
     Dates: start: 20020715, end: 20020807
  7. AMIKACIN SULFATE [Concomitant]
     Route: 048
     Dates: start: 20020813
  8. IBUPROFEN [Concomitant]
     Route: 048
     Dates: start: 20020821, end: 20020912
  9. GABAPENTIN [Concomitant]
     Route: 048
     Dates: start: 20020606
  10. ESOMEPRAZOLE MAGNESIUM [Concomitant]
     Route: 048
     Dates: start: 20021129, end: 20030601

REACTIONS (3)
  - PULMONARY EMBOLISM [None]
  - THROMBOPHLEBITIS SUPERFICIAL [None]
  - THROMBOSIS [None]
